FAERS Safety Report 9283961 (Version 1)
Quarter: 2013Q2

REPORT INFORMATION
  Report Type: Spontaneous
  Country: AR (occurrence: AR)
  Receive Date: 20130510
  Receipt Date: 20130510
  Transmission Date: 20140414
  Serious: Yes (Other)
  Sender: FDA-Public Use
  Company Number: AR-ALEXION-A201300993

PATIENT
  Age: 4 Month
  Sex: Female

DRUGS (2)
  1. SOLIRIS 300MG [Suspect]
     Indication: HAEMOLYTIC URAEMIC SYNDROME
     Dosage: 3 DOSES
     Route: 042
  2. SOLIRIS 300MG [Suspect]
     Dosage: 1 DOSE
     Route: 042
     Dates: start: 20130427, end: 20130427

REACTIONS (5)
  - Neonatal respiratory distress syndrome [Unknown]
  - Hypoxia [Unknown]
  - Hypertension [Unknown]
  - Tachycardia [Unknown]
  - Platelet count decreased [Unknown]
